FAERS Safety Report 8768940 (Version 2)
Quarter: 2012Q4

REPORT INFORMATION
  Report Type: 
  Country: US (occurrence: US)
  Receive Date: 20120904
  Receipt Date: 20121001
  Transmission Date: 20130627
  Serious: No
  Sender: FDA-Public Use
  Company Number: US-009507513-1208USA002009

PATIENT
  Age: 48 Year
  Sex: Female
  Weight: 114.92 kg

DRUGS (5)
  1. VICTRELIS [Suspect]
     Indication: HEPATITIS C
     Dosage: 800 mg, tid (every 7 to 9 hours), start on week 5
     Route: 048
     Dates: start: 20120629
  2. REBETOL [Suspect]
     Indication: HEPATITIS C
     Dosage: dosage was not legible
     Route: 048
     Dates: start: 20120629
  3. PEGASYS [Suspect]
     Indication: HEPATITIS C
     Dosage: 150 mg, UNK
     Route: 058
     Dates: start: 20120629
  4. WELLBUTRIN [Concomitant]
  5. LEXAPRO [Concomitant]

REACTIONS (3)
  - Headache [Unknown]
  - Diarrhoea [Not Recovered/Not Resolved]
  - Dysgeusia [Not Recovered/Not Resolved]
